FAERS Safety Report 6715620-9 (Version None)
Quarter: 2010Q2

REPORT INFORMATION
  Report Type: 
  Country: None (occurrence: None)
  Receive Date: 20100507
  Receipt Date: 20100504
  Transmission Date: 20101027
  Serious: Yes (Life-Threatening, Other)
  Sender: FDA-Public Use
  Company Number: PHHY2009BR27004

PATIENT
  Sex: Female

DRUGS (1)
  1. EXELON [Suspect]
     Dosage: UNK

REACTIONS (6)
  - CRYING [None]
  - ERYTHEMA [None]
  - FEELING ABNORMAL [None]
  - FEELING HOT [None]
  - POISONING [None]
  - VOMITING [None]
